FAERS Safety Report 24228218 (Version 1)
Quarter: 2024Q3

REPORT INFORMATION
  Report Type: Spontaneous
  Country: PL (occurrence: PL)
  Receive Date: 20240820
  Receipt Date: 20240820
  Transmission Date: 20241017
  Serious: Yes (Other)
  Sender: RANBAXY
  Company Number: PL-SUN PHARMACEUTICAL INDUSTRIES LTD-2024RR-462817

PATIENT
  Sex: Male

DRUGS (1)
  1. CLOPIDOGREL [Suspect]
     Active Substance: CLOPIDOGREL BISULFATE
     Indication: Product used for unknown indication
     Dosage: 1 DOSAGE FORM, THERAPY ONGOING
     Route: 048
     Dates: start: 2018

REACTIONS (7)
  - Rash [Unknown]
  - Infarction [Unknown]
  - Seizure [Unknown]
  - Haemorrhage [Unknown]
  - Asthenia [Unknown]
  - Sensitisation [Unknown]
  - Syncope [Unknown]

NARRATIVE: CASE EVENT DATE: 20190723
